FAERS Safety Report 7714121-9 (Version None)
Quarter: 2011Q3

REPORT INFORMATION
  Report Type: 
  Country: None (occurrence: None)
  Receive Date: 20110829
  Receipt Date: 20110824
  Transmission Date: 20111222
  Serious: Yes (Other)
  Sender: FDA-Public Use
  Company Number: FR-BRISTOL-MYERS SQUIBB COMPANY-15949563

PATIENT
  Age: 73 Year
  Sex: Male
  Weight: 80 kg

DRUGS (7)
  1. NICARDIPINE HCL [Concomitant]
  2. PRAVASTATIN SODIUM [Concomitant]
  3. ALLOPURINOL [Concomitant]
  4. METFORMIN HCL [Concomitant]
  5. IPILIMUMAB [Suspect]
     Indication: MALIGNANT MELANOMA
     Dosage: 2 DOSES.0C62102 0F,0C62102 0F,0C62102 0G.TOTAL 2 INFUSION.
     Route: 042
     Dates: start: 20110518, end: 20110608
  6. AMARYL [Concomitant]
  7. ASPIRIN [Concomitant]

REACTIONS (2)
  - CONFUSIONAL STATE [None]
  - BALANCE DISORDER [None]
